FAERS Safety Report 21530120 (Version 2)
Quarter: 2022Q4

REPORT INFORMATION
  Report Type: Spontaneous
  Country: GB (occurrence: GB)
  Receive Date: 20221031
  Receipt Date: 20221208
  Transmission Date: 20230113
  Serious: Yes (Other)
  Sender: FDA-Public Use
  Company Number: GB-BAXTER-2020BAX017656

PATIENT
  Age: 36 Year
  Sex: Female
  Weight: 89 kg

DRUGS (13)
  1. CISPLATIN [Suspect]
     Active Substance: CISPLATIN
     Indication: Neoplasm recurrence
     Dosage: UNK (IN SODIUM CHLORIDE 0.9%), THERAPY DURATION : 1 DAYS
     Route: 065
     Dates: start: 20200824, end: 20200824
  2. DEXAMETHASONE [Suspect]
     Active Substance: DEXAMETHASONE
     Indication: Supportive care
     Dosage: 8 MILLIGRAM DAILY; 8 MG, QD (BD FOR 3 DAYS)
     Route: 065
     Dates: start: 20200824, end: 20200826
  3. ETOPOSIDE [Suspect]
     Active Substance: ETOPOSIDE
     Indication: Neoplasm recurrence
     Dosage: 720 MILLIGRAM DAILY; 360 MILLIGRAM,BID, (720 MG, QD);
     Route: 050
     Dates: start: 20200824, end: 20200824
  4. ETOPOSIDE [Suspect]
     Active Substance: ETOPOSIDE
     Indication: Neoplasm recurrence
  5. METFORMIN [Suspect]
     Active Substance: METFORMIN HYDROCHLORIDE
     Indication: Diabetes mellitus
     Dosage: 500 MILLIGRAM DAILY;  THERAPY END DATE : NOT ASKED, UNIT DOSE : 500 MG, FREQUENCY ; 1 , FREQUENCY TI
     Route: 065
     Dates: start: 20200824
  6. ONDANSETRON [Suspect]
     Active Substance: ONDANSETRON
     Indication: Supportive care
     Dosage: 16 MILLIGRAM DAILY; 8 MG, BID, 2 MG/ML (16 MG, QD, BD FOR 3 DAYS);
     Route: 065
     Dates: start: 20200824, end: 20200826
  7. SODIUM CHLORIDE [Suspect]
     Active Substance: SODIUM CHLORIDE
     Indication: Medication dilution
     Dosage: 2 DOSAGE FORMS DAILY;  (IN ETOPOSIDE) (FORMULATION: INTRAVENOUS INFUSION BP),
     Route: 050
     Dates: start: 20200824, end: 20200824
  8. SODIUM CHLORIDE [Suspect]
     Active Substance: SODIUM CHLORIDE
     Dosage: IN CISPLATIN; AS NECESSARY  THERAPY DURATION : 1 DAYS
     Route: 065
     Dates: start: 20200824, end: 20200824
  9. APREPITANT [Suspect]
     Active Substance: APREPITANT
     Indication: Supportive care
     Dosage: 80 MG (D3), PRN, UNIT DOSE : 80  MG, THERAPY DURATION : 1 DAYS
     Route: 065
     Dates: start: 20200826, end: 20200826
  10. APREPITANT [Suspect]
     Active Substance: APREPITANT
     Dosage: 125 MG (D1), PRN,  UNIT DOSE : 125 MG, THERAPY END DATE : NOT ASKED
     Route: 065
     Dates: start: 20200824
  11. APREPITANT [Suspect]
     Active Substance: APREPITANT
     Dosage: 80 MG (D2),PRN,  UNIT DOSE : 80 MG, THERAPY END DATE : NOT ASKED
     Route: 065
     Dates: start: 20200825
  12. DALTEPARIN [Suspect]
     Active Substance: DALTEPARIN
     Indication: Product used for unknown indication
     Dosage: 18000 IU (INTERNATIONAL UNIT) DAILY; THERAPY END DATE : NOT ASKED, UNIT DOSE : 18000 IU, FREQUENCY ;
     Route: 065
     Dates: start: 20200824
  13. DOMPERIDONE [Suspect]
     Active Substance: DOMPERIDONE
     Indication: Supportive care
     Dosage: 30 MILLIGRAM DAILY; 10 MG, TID, PRN (30 MG, QD)
     Route: 065
     Dates: start: 20200824

REACTIONS (1)
  - Anaphylactic reaction [Recovered/Resolved]

NARRATIVE: CASE EVENT DATE: 20200824
